FAERS Safety Report 8362096 (Version 2)
Quarter: 2015Q2

REPORT INFORMATION
  Report Type: Report from Study
  Country: US (occurrence: US)
  Receive Date: 20120130
  Receipt Date: 20150616
  Transmission Date: 20150821
  Serious: Yes (Death)
  Sender: FDA-Public Use
  Company Number: US-ROCHE-1033913

PATIENT
  Sex: Female
  Weight: 78 kg

DRUGS (12)
  1. AVASTIN [Suspect]
     Active Substance: BEVACIZUMAB
     Dosage: 11.5 MG/KG (25 MG/ML)
     Route: 042
     Dates: start: 20070622
  2. ATROPINE SULPHATE [Concomitant]
     Active Substance: ATROPINE SULFATE
     Route: 042
     Dates: start: 20070622
  3. KEPPRA [Concomitant]
     Active Substance: LEVETIRACETAM
     Route: 048
  4. IRINOTECAN HYDROCHLORIDE. [Concomitant]
     Active Substance: IRINOTECAN HYDROCHLORIDE
     Route: 042
     Dates: start: 20060722
  5. PALONOSETRON [Concomitant]
     Active Substance: PALONOSETRON
     Route: 042
     Dates: start: 20060722
  6. AVASTIN [Suspect]
     Active Substance: BEVACIZUMAB
     Indication: BRAIN NEOPLASM MALIGNANT
     Route: 042
     Dates: start: 20070302
  7. DEXAMETHASONE SODIUM PHOSPHATE. [Concomitant]
     Active Substance: DEXAMETHASONE SODIUM PHOSPHATE
     Route: 042
     Dates: start: 20060722
  8. TOPAMAX [Concomitant]
     Active Substance: TOPIRAMATE
     Route: 048
  9. AVASTIN [Suspect]
     Active Substance: BEVACIZUMAB
     Dosage: 10.7 MG/KG (25MG/ML)
     Route: 042
     Dates: start: 20070525
  10. GABAPENTIN. [Concomitant]
     Active Substance: GABAPENTIN
     Route: 048
  11. DEXAMETHASONE. [Concomitant]
     Active Substance: DEXAMETHASONE
     Route: 048
  12. PERCOCET [Concomitant]
     Active Substance: ACETAMINOPHEN\OXYCODONE HYDROCHLORIDE
     Dosage: 5/500 MG
     Route: 048

REACTIONS (4)
  - Death [Fatal]
  - Asthenia [Unknown]
  - Cushingoid [Unknown]
  - Off label use [Unknown]
